FAERS Safety Report 4280098-4 (Version None)
Quarter: 2004Q1

REPORT INFORMATION
  Report Type: 
  Country: None (occurrence: None)
  Receive Date: 20040126
  Receipt Date: 20040119
  Transmission Date: 20041129
  Serious: Yes (Hospitalization, Other)
  Sender: FDA-Public Use
  Company Number: 2003125347

PATIENT
  Age: 60 Year
  Sex: Male
  Weight: 81.6 kg

DRUGS (12)
  1. ZITHROMAX [Suspect]
     Indication: BRONCHITIS
     Dosage: 500 MG (DAILY); ORAL (SEE IMAGE)
     Route: 048
     Dates: start: 20031113, end: 20031114
  2. THEOPHYLLINE [Suspect]
     Indication: STRIDOR
     Dosage: 800 MG (BID); ORAL (SEE IMAGE)
     Route: 048
     Dates: start: 20031108, end: 20031115
  3. DEXTROMETHORPHAN HYDROBROMIDE [Concomitant]
  4. PLANTAGO MAJOR [Concomitant]
  5. AMBROXOL HYDROCHLORIDE [Concomitant]
  6. PENTAZOCINE [Concomitant]
  7. THEOPHYLLINE [Concomitant]
  8. BUDESONIDE [Concomitant]
  9. DICLOFENAC SODIUM [Concomitant]
  10. SALMETEROL XINAFOATE [Concomitant]
  11. FLUTICASONE PROPIONATE [Concomitant]
  12. SALBUTAMOL SULFATE [Concomitant]

REACTIONS (19)
  - ALANINE AMINOTRANSFERASE INCREASED [None]
  - ASPARTATE AMINOTRANSFERASE INCREASED [None]
  - BLOOD BILIRUBIN INCREASED [None]
  - BLOOD CREATININE INCREASED [None]
  - BLOOD LACTATE DEHYDROGENASE INCREASED [None]
  - DRUG LEVEL DECREASED [None]
  - DYSPEPSIA [None]
  - GAMMA-GLUTAMYLTRANSFERASE INCREASED [None]
  - HAEMODIALYSIS [None]
  - HEPATIC FUNCTION ABNORMAL [None]
  - INTERSTITIAL LUNG DISEASE [None]
  - JAUNDICE [None]
  - NAUSEA [None]
  - PRURITUS [None]
  - PYREXIA [None]
  - RASH GENERALISED [None]
  - RASH MORBILLIFORM [None]
  - RENAL FAILURE [None]
  - VOMITING [None]
